FAERS Safety Report 10437508 (Version 1)
Quarter: 2014Q3

REPORT INFORMATION
  Report Type: Spontaneous
  Country: US (occurrence: US)
  Receive Date: 20140908
  Receipt Date: 20140908
  Transmission Date: 20150326
  Serious: No
  Sender: FDA-Public Use
  Company Number: US-BRISTOL-MYERS SQUIBB COMPANY-19712330

PATIENT
  Age: 63 Year
  Sex: Female

DRUGS (4)
  1. ABILIFY [Suspect]
     Active Substance: ARIPIPRAZOLE
     Indication: ANXIETY
     Dosage: ABILIFY 5 MG ONCE DAILY-JUN2013?OCT2013,RESTARTED THERAPY-5MG ONCE/DAY THEN 7.5 MG FOR 2 DAYS
     Dates: start: 201306
  2. AMBIEN [Concomitant]
     Active Substance: ZOLPIDEM TARTRATE
     Indication: BLOOD PRESSURE
  3. LOTREL [Concomitant]
     Active Substance: AMLODIPINE BESYLATE\BENAZEPRIL HYDROCHLORIDE
     Indication: BLOOD PRESSURE
  4. ABILIFY [Suspect]
     Active Substance: ARIPIPRAZOLE
     Indication: DEPRESSION
     Dosage: ABILIFY 5 MG ONCE DAILY-JUN2013?OCT2013,RESTARTED THERAPY-5MG ONCE/DAY THEN 7.5 MG FOR 2 DAYS
     Dates: start: 201306

REACTIONS (3)
  - Blood glucose increased [Unknown]
  - Drug ineffective [Unknown]
  - Blood cholesterol increased [Unknown]
